FAERS Safety Report 21445158 (Version 1)
Quarter: 2022Q4

REPORT INFORMATION
  Report Type: Spontaneous
  Country: CN (occurrence: CN)
  Receive Date: 20221012
  Receipt Date: 20221012
  Transmission Date: 20230113
  Serious: Yes (Hospitalization)
  Sender: FDA-Public Use
  Company Number: CN-MYLANLABS-2022M1111464

PATIENT
  Age: 57 Year
  Sex: Female

DRUGS (2)
  1. CELEBREX [Suspect]
     Active Substance: CELECOXIB
     Indication: Headache
     Dosage: 0.2 GRAM, QD
     Route: 048
     Dates: start: 20220824, end: 20220906
  2. HERBALS [Suspect]
     Active Substance: HERBALS
     Indication: Pain
     Dosage: 3 DOSAGE FORM, TID
     Route: 048
     Dates: start: 20220824, end: 20220906

REACTIONS (3)
  - Papule [Unknown]
  - Erythema [Unknown]
  - Off label use [Unknown]

NARRATIVE: CASE EVENT DATE: 20220824
